FAERS Safety Report 4598730-4 (Version None)
Quarter: 2005Q1

REPORT INFORMATION
  Report Type: 
  Country: None (occurrence: None)
  Receive Date: 20050304
  Receipt Date: 20050303
  Transmission Date: 20050727
  Serious: Yes (Other)
  Sender: FDA-Public Use
  Company Number: US-GLAXOSMITHKLINE-A0548172A

PATIENT
  Sex: Male

DRUGS (2)
  1. VALTREX [Suspect]
     Route: 048
  2. NO CONCURRENT MEDICATION [Concomitant]

REACTIONS (6)
  - ABDOMINAL PAIN UPPER [None]
  - AGGRESSION [None]
  - ANXIETY [None]
  - DRUG INEFFECTIVE [None]
  - NAUSEA [None]
  - TREMOR [None]
